FAERS Safety Report 11883486 (Version 3)
Quarter: 2016Q1

REPORT INFORMATION
  Report Type: Spontaneous
  Country: AR (occurrence: AR)
  Receive Date: 20151231
  Receipt Date: 20160119
  Transmission Date: 20160526
  Serious: Yes (Other)
  Sender: FDA-Public Use
  Company Number: CHPA2015AR015349

PATIENT
  Sex: Female

DRUGS (1)
  1. DIOVAN [Suspect]
     Active Substance: VALSARTAN
     Indication: BLOOD PRESSURE ABNORMAL
     Dosage: 160 UNK, UNK
     Route: 065

REACTIONS (9)
  - Headache [Recovered/Resolved]
  - Eating disorder [Recovered/Resolved]
  - Feeling abnormal [Recovered/Resolved]
  - Limb discomfort [Unknown]
  - Insomnia [Recovered/Resolved]
  - Fear [Recovered/Resolved]
  - Depressed mood [Recovered/Resolved]
  - Diabetes mellitus [Unknown]
  - Hypertension [Recovered/Resolved]

NARRATIVE: CASE EVENT DATE: 2011
